FAERS Safety Report 17958892 (Version 1)
Quarter: 2020Q2

REPORT INFORMATION
  Report Type: Spontaneous
  Country: IT (occurrence: IT)
  Receive Date: 20200629
  Receipt Date: 20200629
  Transmission Date: 20200714
  Serious: Yes (Life-Threatening, Other)
  Sender: FDA-Public Use
  Company Number: IT-GALDERMA-IT2020030401

PATIENT
  Age: 78 Year
  Sex: Female

DRUGS (4)
  1. DOXYCYCLINE. [Suspect]
     Active Substance: DOXYCYCLINE
     Indication: COVID-19
     Route: 065
  2. HYDROXYCHLOROQUINE [Concomitant]
     Active Substance: HYDROXYCHLOROQUINE
     Indication: COVID-19
     Route: 065
  3. NOREPINEPHRINE. [Concomitant]
     Active Substance: NOREPINEPHRINE
     Indication: PRODUCT USED FOR UNKNOWN INDICATION
     Route: 065
  4. COBICISTAT/DARUNAVIR [Concomitant]
     Active Substance: COBICISTAT\DARUNAVIR ETHANOLATE
     Indication: COVID-19
     Route: 065

REACTIONS (13)
  - Thrombocytopenia [Unknown]
  - Cyanosis [Unknown]
  - Acute kidney injury [Unknown]
  - Hyperlactacidaemia [Unknown]
  - Coma [Unknown]
  - Atrial fibrillation [Unknown]
  - Respiratory failure [Unknown]
  - Intentional product use issue [Recovered/Resolved]
  - Dry gangrene [Unknown]
  - Disseminated intravascular coagulation [Unknown]
  - Lymphopenia [Unknown]
  - Condition aggravated [Unknown]
  - Leukocytosis [Unknown]
